FAERS Safety Report 5327925-7 (Version None)
Quarter: 2007Q2

REPORT INFORMATION
  Report Type: 
  Country: None (occurrence: None)
  Receive Date: 20070517
  Receipt Date: 20070514
  Transmission Date: 20071010
  Serious: Yes (Hospitalization)
  Sender: FDA-Public Use
  Company Number: FR-BOEHRINGER INGELHEIM PHARMACEUTICALS, INC.-2007-FF-00579FF

PATIENT
  Age: 48 Year
  Sex: Male
  Weight: 55 kg

DRUGS (3)
  1. APTIVUS [Suspect]
     Indication: HIV INFECTION
     Route: 048
     Dates: start: 20041001, end: 20061003
  2. VIREAD [Concomitant]
     Indication: HIV INFECTION
     Route: 048
  3. KIVEXA [Concomitant]
     Indication: HIV INFECTION
     Route: 048

REACTIONS (2)
  - COAGULATION FACTOR DECREASED [None]
  - HAEMARTHROSIS [None]
